FAERS Safety Report 10580453 (Version 2)
Quarter: 2015Q2

REPORT INFORMATION
  Report Type: Spontaneous
  Country: IT (occurrence: IT)
  Receive Date: 20141113
  Receipt Date: 20150408
  Transmission Date: 20150821
  Serious: Yes (Other)
  Sender: FDA-Public Use
  Company Number: IT-AMGEN-ITASP2014086890

PATIENT
  Age: 58 Year
  Sex: Female

DRUGS (3)
  1. OMEPRAZOLE. [Concomitant]
     Active Substance: OMEPRAZOLE
     Indication: PROPHYLAXIS OF NAUSEA AND VOMITING
     Dosage: 20 MG, UNK
     Route: 048
  2. NEULASTA [Suspect]
     Active Substance: PEGFILGRASTIM
     Indication: ANAEMIA
     Dosage: 6 MG (12 MG IN TOTAL), UNK
     Route: 058
     Dates: start: 20141011, end: 20141012
  3. EMEND [Suspect]
     Active Substance: APREPITANT
     Indication: PROPHYLAXIS OF NAUSEA AND VOMITING
     Dosage: 280 MG, UNK
     Route: 048
     Dates: start: 20141010, end: 20141012

REACTIONS (2)
  - Laryngospasm [Recovered/Resolved]
  - Urticaria papular [Recovered/Resolved]

NARRATIVE: CASE EVENT DATE: 20141012
